FAERS Safety Report 8157529-2 (Version None)
Quarter: 2012Q1

REPORT INFORMATION
  Report Type: 
  Country: None (occurrence: None)
  Receive Date: 20120222
  Receipt Date: 20120214
  Transmission Date: 20120608
  Serious: Yes (Hospitalization, Other)
  Sender: FDA-Public Use
  Company Number: US-PFIZER INC-2012031154

PATIENT
  Sex: Female
  Weight: 65.9 kg

DRUGS (13)
  1. MEGACE [Suspect]
     Indication: DECREASED APPETITE
     Dosage: 5CC, QD
     Route: 048
     Dates: start: 20110927, end: 20111004
  2. AXITINIB [Suspect]
     Indication: METASTATIC MALIGNANT MELANOMA
     Dosage: 3 MG, 2X/DAY,1 DF
     Route: 048
  3. WELLBUTRIN [Concomitant]
     Dosage: 200 MG, 2X/DAY
     Dates: start: 20030101
  4. PACLITAXEL [Suspect]
     Indication: METASTATIC MALIGNANT MELANOMA
     Dosage: 215 MG, EVERY 3 WEEKS
     Route: 042
     Dates: start: 20111020, end: 20111020
  5. PREMPRO [Suspect]
     Indication: ARTHRITIS
     Dosage: 0.625 MG/2.5 MG, QD
     Route: 048
     Dates: start: 20070101
  6. ZOFRAN [Concomitant]
     Dosage: 8 MG, AS NEEDED  EVERY 8 HOURS
     Dates: start: 20110501
  7. CARBOPLATIN [Suspect]
     Indication: METASTATIC MALIGNANT MELANOMA
     Dosage: 565 MG, EVERY 3 WEEKS
     Route: 042
     Dates: start: 20111020, end: 20111020
  8. CELEBREX [Suspect]
     Indication: MENOPAUSE
     Dosage: 200 MG, 1X/DAY
     Route: 048
     Dates: start: 19970101, end: 20111101
  9. METOPROLOL TARTRATE [Suspect]
     Indication: HYPERTENSION
     Dosage: 25 MG, 1X/DAY
     Route: 048
     Dates: start: 20110916, end: 20111012
  10. BENADRYL [Concomitant]
     Dosage: UNK
  11. CELEBREX [Suspect]
     Indication: ARTHRITIS
  12. MEGACE [Suspect]
     Dosage: 5 ML, 1X/DAY
     Dates: start: 20111128
  13. MS CONTIN [Concomitant]
     Dosage: 15 MG, 2X/DAY, AS NEEDED
     Dates: start: 20110711

REACTIONS (2)
  - VAGINAL HAEMORRHAGE [None]
  - ANAEMIA [None]
